FAERS Safety Report 17827176 (Version 1)
Quarter: 2020Q2

REPORT INFORMATION
  Report Type: Spontaneous
  Country: MY (occurrence: MY)
  Receive Date: 20200527
  Receipt Date: 20200527
  Transmission Date: 20200714
  Serious: Yes (Other)
  Sender: FDA-Public Use
  Company Number: MY-GLAXOSMITHKLINE-MY2020APC084581

PATIENT
  Age: 59 Year
  Sex: Male

DRUGS (1)
  1. ZINACEF [Suspect]
     Active Substance: CEFUROXIME SODIUM
     Indication: ANTIBIOTIC PROPHYLAXIS
     Dosage: 1.5 G, 1D
     Route: 042

REACTIONS (3)
  - Urticaria [Recovered/Resolved]
  - Blood pressure decreased [Recovered/Resolved]
  - Heart rate increased [Recovered/Resolved]
